FAERS Safety Report 5937118-8 (Version None)
Quarter: 2008Q4

REPORT INFORMATION
  Report Type: 
  Country: None (occurrence: None)
  Receive Date: 20081031
  Receipt Date: 20081024
  Transmission Date: 20090506
  Serious: Yes (Hospitalization)
  Sender: FDA-Public Use
  Company Number: PHHY2008JP26099

PATIENT

DRUGS (8)
  1. SIMULECT [Suspect]
     Indication: RENAL TRANSPLANT
     Dosage: 20 MG
     Route: 042
     Dates: start: 20060304, end: 20060304
  2. SIMULECT [Suspect]
     Dosage: 20 MG,
     Route: 042
     Dates: start: 20060308, end: 20060308
  3. PROGRAF [Concomitant]
     Indication: RENAL TRANSPLANT
     Dosage: UNK
     Route: 048
     Dates: start: 20060304
  4. PREDNISOLONE [Concomitant]
     Indication: RENAL TRANSPLANT
     Dosage: 60 MG, UNK
     Route: 048
     Dates: start: 20060304
  5. CELLCEPT [Concomitant]
     Indication: RENAL TRANSPLANT
     Dosage: 2 G,
     Route: 048
     Dates: start: 20080304
  6. RABEPRAZOLE SODIUM [Concomitant]
     Indication: PROPHYLAXIS AGAINST GASTROINTESTINAL ULCER
     Dosage: 1 DF, UNK
     Route: 048
     Dates: start: 20060306
  7. AMLODIN [Concomitant]
     Indication: HYPERTENSION
     Dosage: 2 DF,
     Route: 048
     Dates: start: 20060411
  8. ZYLORIC [Concomitant]
     Indication: HYPERURICAEMIA
     Dosage: 1 DF, UNK
     Route: 048
     Dates: start: 20060405

REACTIONS (3)
  - DIALYSIS [None]
  - KIDNEY TRANSPLANT REJECTION [None]
  - RENAL TUBULAR NECROSIS [None]
